FAERS Safety Report 6085716-6 (Version None)
Quarter: 2009Q1

REPORT INFORMATION
  Report Type: 
  Country: None (occurrence: None)
  Receive Date: 20090220
  Receipt Date: 20090210
  Transmission Date: 20090719
  Serious: Yes (Other)
  Sender: FDA-Public Use
  Company Number: PHHY2009DE04892

PATIENT
  Sex: Male

DRUGS (1)
  1. EXJADE [Suspect]
     Dosage: 30 MG/KG, QD
     Route: 048
     Dates: start: 20061201

REACTIONS (3)
  - CHOLESTEATOMA [None]
  - MASTOIDITIS [None]
  - SURGERY [None]
